FAERS Safety Report 9296284 (Version 1)
Quarter: 2013Q2

REPORT INFORMATION
  Report Type: Spontaneous
  Country: BO (occurrence: BO)
  Receive Date: 20130517
  Receipt Date: 20130517
  Transmission Date: 20140414
  Serious: Yes (Life-Threatening, Other)
  Sender: FDA-Public Use
  Company Number: BO-BRISTOL-MYERS SQUIBB COMPANY-18896571

PATIENT
  Age: 73 Year
  Sex: Female

DRUGS (4)
  1. COAPROVEL [Suspect]
     Indication: HYPERTENSION
     Dosage: 1 DF : 300/25 UNITS NOS.?STRAT : 3 YEARS AGO.?INTERRUPTED ON 23APR2013
     Route: 048
     Dates: start: 2010
  2. TRAMADOL HCL + ACETAMINOPHEN [Concomitant]
     Indication: HEADACHE
  3. ATENOLOL [Concomitant]
     Dosage: 1/2 TABLET OF ATENOLOL 100 MG.
  4. ASPIRIN [Concomitant]

REACTIONS (3)
  - Syncope [Recovered/Resolved]
  - Brain neoplasm benign [Unknown]
  - Headache [Unknown]
